FAERS Safety Report 17164430 (Version 3)
Quarter: 2020Q3

REPORT INFORMATION
  Report Type: Other
  Country: DE (occurrence: DE)
  Receive Date: 20191217
  Receipt Date: 20200306
  Transmission Date: 20201104
  Serious: Yes (Hospitalization, Other)
  Sender: FDA-Public Use
  Company Number: DE-CELLTRION INC.-2019DE025514

PATIENT

DRUGS (32)
  1. POLATUZUMAB VEDOTIN. [Suspect]
     Active Substance: POLATUZUMAB VEDOTIN
     Indication: LYMPHOMA
     Dosage: 135 MG
     Route: 042
     Dates: start: 20190909
  2. POLATUZUMAB VEDOTIN. [Suspect]
     Active Substance: POLATUZUMAB VEDOTIN
     Dosage: 135 MG
     Route: 042
     Dates: start: 20190909
  3. POLATUZUMAB VEDOTIN. [Suspect]
     Active Substance: POLATUZUMAB VEDOTIN
     Dosage: 135 MG
     Route: 042
     Dates: start: 20191014, end: 20191031
  4. BENDAMUSTINE [Suspect]
     Active Substance: BENDAMUSTINE
     Dosage: UNK
     Route: 042
     Dates: start: 20190910, end: 20190911
  5. PIPERACILLIN. [Concomitant]
     Active Substance: PIPERACILLIN SODIUM
     Indication: PRODUCT USED FOR UNKNOWN INDICATION
     Dosage: 4 G
     Route: 042
     Dates: start: 20191031, end: 20191107
  6. RITUXIMAB (UNKNOWN) [Suspect]
     Active Substance: RITUXIMAB
     Dosage: 727.5 MG
     Route: 042
     Dates: start: 20190910
  7. RITUXIMAB (UNKNOWN) [Suspect]
     Active Substance: RITUXIMAB
     Dosage: 727.5 MG
     Route: 042
     Dates: start: 20190910
  8. BENDAMUSTINE [Suspect]
     Active Substance: BENDAMUSTINE
     Dosage: 174.6 MG
     Route: 042
     Dates: start: 20191015, end: 20191031
  9. SODIUM CHLORIDE. [Concomitant]
     Active Substance: SODIUM CHLORIDE
     Indication: PRODUCT USED FOR UNKNOWN INDICATION
     Dosage: 2000 ML, OVER 24 HOURS
     Route: 042
     Dates: start: 20191031, end: 20191107
  10. TAZOBACTAM [Concomitant]
     Active Substance: TAZOBACTAM
     Indication: PRODUCT USED FOR UNKNOWN INDICATION
     Dosage: 0.5 MG
     Route: 042
     Dates: start: 20191031, end: 20191107
  11. POLATUZUMAB VEDOTIN. [Suspect]
     Active Substance: POLATUZUMAB VEDOTIN
     Dosage: 135 MG
     Route: 042
     Dates: start: 20190909, end: 20190911
  12. RITUXIMAB (UNKNOWN) [Suspect]
     Active Substance: RITUXIMAB
     Dosage: END DATE: 31/OCT/2019
     Route: 042
     Dates: start: 20191014, end: 20191031
  13. BENDAMUSTINE [Suspect]
     Active Substance: BENDAMUSTINE
     Dosage: UNK
     Route: 042
     Dates: start: 20190910, end: 20190911
  14. RITUXIMAB (UNKNOWN) [Suspect]
     Active Substance: RITUXIMAB
     Indication: LYMPHOMA
     Dosage: 727.5 MG
     Route: 042
     Dates: start: 20190910, end: 20190910
  15. RITUXIMAB (UNKNOWN) [Suspect]
     Active Substance: RITUXIMAB
     Dosage: END DATE: 31/OCT/2019
     Route: 042
     Dates: start: 20191014, end: 20191031
  16. BENDAMUSTINE [Suspect]
     Active Substance: BENDAMUSTINE
     Dosage: UNK
     Route: 042
     Dates: start: 20190910
  17. COTRIM FORTE [Concomitant]
     Active Substance: SULFAMETHOXAZOLE\TRIMETHOPRIM
     Indication: PROPHYLAXIS
     Dosage: 2880 MG, 1/WEEK
     Route: 048
  18. ACICLOVIR [Concomitant]
     Active Substance: ACYCLOVIR
     Indication: PROPHYLAXIS
     Dosage: 800 MG
     Route: 048
  19. POLATUZUMAB VEDOTIN. [Suspect]
     Active Substance: POLATUZUMAB VEDOTIN
     Dosage: 135 MG
     Route: 042
     Dates: start: 20191014, end: 20191031
  20. BENDAMUSTINE [Suspect]
     Active Substance: BENDAMUSTINE
     Indication: LYMPHOMA
     Dosage: UNK
     Route: 042
     Dates: start: 20190910
  21. BENDAMUSTINE [Suspect]
     Active Substance: BENDAMUSTINE
     Dosage: UNK
     Route: 042
     Dates: start: 20190910
  22. BENDAMUSTINE [Suspect]
     Active Substance: BENDAMUSTINE
     Dosage: UNK
     Route: 042
     Dates: start: 20190910
  23. BENDAMUSTINE [Suspect]
     Active Substance: BENDAMUSTINE
     Dosage: 174.6 MG
     Route: 042
     Dates: start: 20191015, end: 20191031
  24. POLATUZUMAB VEDOTIN. [Suspect]
     Active Substance: POLATUZUMAB VEDOTIN
     Dosage: 135 MG
     Route: 042
     Dates: start: 20190909
  25. BENDAMUSTINE [Suspect]
     Active Substance: BENDAMUSTINE
     Dosage: 174.6 MG
     Route: 042
     Dates: start: 20191015, end: 20191031
  26. BENDAMUSTINE [Suspect]
     Active Substance: BENDAMUSTINE
     Dosage: 174.6 MG
     Route: 042
     Dates: start: 20191015, end: 20191031
  27. COLECALCIFEROL;MENAQUINONE?7 [Concomitant]
     Indication: HYPOCALCAEMIA
     Dosage: 1500 MG, 1/DAY
     Route: 048
     Dates: start: 20180919
  28. PREDNISOLON [PREDNISOLONE] [Concomitant]
     Active Substance: PREDNISOLONE
     Indication: PRODUCT USED FOR UNKNOWN INDICATION
     Dosage: 100 MG
     Route: 042
     Dates: start: 20191031, end: 20191107
  29. TAZOBACTAM [Concomitant]
     Active Substance: TAZOBACTAM
     Dosage: 0.5 MG, UNKNOWN FREQ.
     Route: 042
     Dates: start: 20191031, end: 20191107
  30. POLATUZUMAB VEDOTIN. [Suspect]
     Active Substance: POLATUZUMAB VEDOTIN
     Dosage: 135 MG
     Route: 042
     Dates: start: 20191014, end: 20191031
  31. COTRIM FORTE [Concomitant]
     Active Substance: SULFAMETHOXAZOLE\TRIMETHOPRIM
     Dosage: 960 MG, 1/WEEK
     Route: 048
  32. AMPHOTERICIN [Concomitant]
     Active Substance: AMPHOTERICIN B
     Indication: PROPHYLAXIS
     Dosage: 400 MG
     Route: 048

REACTIONS (11)
  - Cough [Recovering/Resolving]
  - Acute kidney injury [Recovered/Resolved]
  - Influenza [Recovering/Resolving]
  - Thrombocytopenia [Not Recovered/Not Resolved]
  - Rhinitis [Recovering/Resolving]
  - Dyspnoea [Recovering/Resolving]
  - Blood lactate dehydrogenase increased [Recovering/Resolving]
  - Hypocalcaemia [Not Recovered/Not Resolved]
  - Overdose [Unknown]
  - Anaemia [Not Recovered/Not Resolved]
  - Pyrexia [Recovering/Resolving]

NARRATIVE: CASE EVENT DATE: 20190918
